FAERS Safety Report 18584371 (Version 1)
Quarter: 2020Q4

REPORT INFORMATION
  Report Type: Spontaneous
  Country: AU (occurrence: AU)
  Receive Date: 20201207
  Receipt Date: 20201207
  Transmission Date: 20210114
  Serious: Yes (Other)
  Sender: FDA-Public Use
  Company Number: AU-AMGEN-AUSSP2020194872

PATIENT
  Age: 72 Year
  Sex: Female

DRUGS (7)
  1. OMEPRAZOLE. [Concomitant]
     Active Substance: OMEPRAZOLE
  2. ROSUVASTATINE [ROSUVASTATIN] [Concomitant]
     Active Substance: ROSUVASTATIN
  3. PROLIA [Suspect]
     Active Substance: DENOSUMAB
     Indication: BONE DENSITY DECREASED
     Dosage: 60 MILLIGRAM
     Route: 058
     Dates: start: 20190303
  4. VAGIFEM [Concomitant]
     Active Substance: ESTRADIOL
  5. LIDOPAIN [Concomitant]
  6. PROLIA [Suspect]
     Active Substance: DENOSUMAB
     Indication: POSTMENOPAUSE
  7. PERINDOPRIL [Concomitant]
     Active Substance: PERINDOPRIL

REACTIONS (3)
  - Bladder prolapse [Not Recovered/Not Resolved]
  - Femur fracture [Unknown]
  - Road traffic accident [Unknown]

NARRATIVE: CASE EVENT DATE: 2019
